FAERS Safety Report 18216924 (Version 1)
Quarter: 2020Q3

REPORT INFORMATION
  Report Type: Spontaneous
  Country: US (occurrence: US)
  Receive Date: 20200901
  Receipt Date: 20200901
  Transmission Date: 20201103
  Serious: Yes (Hospitalization, Other)
  Sender: FDA-Public Use
  Company Number: US-ABBVIE-20K-163-3543757-00

PATIENT
  Age: 76 Year
  Sex: Female
  Weight: 54.43 kg

DRUGS (5)
  1. CLARITHROMYCIN. [Suspect]
     Active Substance: CLARITHROMYCIN
     Indication: PRODUCT USED FOR UNKNOWN INDICATION
     Route: 065
  2. VYNDAMAX [Suspect]
     Active Substance: TAFAMIDIS
     Indication: CARDIAC AMYLOIDOSIS
     Dosage: 1 CAPSULE BY MOUTH DAILY
     Route: 048
     Dates: start: 202001, end: 202007
  3. LEVOFLOXACIN. [Concomitant]
     Active Substance: LEVOFLOXACIN
     Indication: PRODUCT USED FOR UNKNOWN INDICATION
     Route: 065
  4. FLAGYL [Suspect]
     Active Substance: METRONIDAZOLE\METRONIDAZOLE HYDROCHLORIDE
     Indication: PRODUCT USED FOR UNKNOWN INDICATION
     Route: 065
  5. VYNDAMAX [Suspect]
     Active Substance: TAFAMIDIS
     Route: 048
     Dates: start: 20200726

REACTIONS (7)
  - Diarrhoea [Not Recovered/Not Resolved]
  - Cardiorenal syndrome [Unknown]
  - Hyponatraemia [Not Recovered/Not Resolved]
  - Cardiac failure [Unknown]
  - Acute kidney injury [Unknown]
  - Helicobacter infection [Unknown]
  - Drug intolerance [Unknown]

NARRATIVE: CASE EVENT DATE: 20200718
